FAERS Safety Report 21711210 (Version 3)
Quarter: 2022Q4

REPORT INFORMATION
  Report Type: Spontaneous
  Country: US (occurrence: None)
  Receive Date: 20221212
  Receipt Date: 20221215
  Transmission Date: 20230112
  Serious: Yes (Other)
  Sender: FDA-Public Use
  Company Number: US-ROCHE-3235412

PATIENT
  Age: 54 Year
  Sex: Male
  Weight: 89.438 kg

DRUGS (24)
  1. RITUXAN [Suspect]
     Active Substance: RITUXIMAB
     Indication: Mantle cell lymphoma refractory
     Dosage: X 3 CYCLES
     Route: 041
     Dates: start: 20200819, end: 20201014
  2. RITUXAN [Suspect]
     Active Substance: RITUXIMAB
     Dosage: X 3 CYCLES
     Route: 041
     Dates: start: 20201222, end: 20210208
  3. RITUXAN [Suspect]
     Active Substance: RITUXIMAB
     Dosage: X 3 CYCLES
     Route: 041
     Dates: start: 20220929, end: 20221022
  4. RITUXAN [Suspect]
     Active Substance: RITUXIMAB
     Route: 041
  5. VENCLEXTA [Suspect]
     Active Substance: VENETOCLAX
     Indication: Mantle cell lymphoma refractory
     Dosage: RAMP UP TO 100 MG THEN 200 MG
     Route: 048
     Dates: start: 20221116
  6. ACTEMRA [Suspect]
     Active Substance: TOCILIZUMAB
     Indication: Pyrexia
     Route: 065
  7. METHOTREXATE [Concomitant]
     Active Substance: METHOTREXATE
     Indication: Mantle cell lymphoma refractory
     Dates: start: 20201222, end: 20210208
  8. METHOTREXATE [Concomitant]
     Active Substance: METHOTREXATE
     Dates: start: 20211228, end: 20220129
  9. CYTARABINE [Concomitant]
     Active Substance: CYTARABINE
     Indication: Mantle cell lymphoma refractory
     Dates: start: 20201222, end: 20210208
  10. CYTARABINE [Concomitant]
     Active Substance: CYTARABINE
     Dates: start: 20220909, end: 20221022
  11. CYTOXAN [Concomitant]
     Active Substance: CYCLOPHOSPHAMIDE
     Indication: Mantle cell lymphoma refractory
     Route: 042
     Dates: start: 20201222, end: 20210208
  12. ETOPOSIDE [Concomitant]
     Active Substance: ETOPOSIDE
     Indication: Mantle cell lymphoma refractory
     Route: 042
     Dates: start: 20201222, end: 20210208
  13. IFOSFAMIDE [Concomitant]
     Active Substance: IFOSFAMIDE
     Indication: Mantle cell lymphoma refractory
     Route: 042
     Dates: start: 20201222, end: 20210208
  14. IMBRUVICA [Concomitant]
     Active Substance: IBRUTINIB
     Indication: Mantle cell lymphoma refractory
     Dates: start: 20210223, end: 20220117
  15. FLUDARABINE [Concomitant]
     Active Substance: FLUDARABINE PHOSPHATE
     Indication: Mantle cell lymphoma refractory
     Dates: start: 20220211
  16. CYCLOPHOSPHAMIDE [Concomitant]
     Active Substance: CYCLOPHOSPHAMIDE
     Indication: Mantle cell lymphoma refractory
     Dates: start: 20220211
  17. OXALIPLATIN [Concomitant]
     Active Substance: OXALIPLATIN
     Indication: Mantle cell lymphoma refractory
     Dates: start: 20220929, end: 20221022
  18. REVLIMID [Concomitant]
     Active Substance: LENALIDOMIDE
     Indication: Mantle cell lymphoma refractory
     Dosage: X 21 DAYS AND 7 DAYS OFF
     Dates: start: 20221116
  19. BENDAMUSTINE [Concomitant]
     Active Substance: BENDAMUSTINE
     Indication: Mantle cell lymphoma refractory
     Dosage: X 3 CYCLES
     Dates: start: 20200819, end: 20201207
  20. BENDAMUSTINE [Concomitant]
     Active Substance: BENDAMUSTINE
     Dates: start: 20221116
  21. NORVASC [Concomitant]
     Active Substance: AMLODIPINE BESYLATE
     Indication: Hypertension
  22. HYDROCHLOROTHIAZIDE [Concomitant]
     Active Substance: HYDROCHLOROTHIAZIDE
     Indication: Hypertension
  23. ASPIRIN [Concomitant]
     Active Substance: ASPIRIN
     Indication: Product used for unknown indication
     Route: 048
  24. ACYCLOVIR [Concomitant]
     Active Substance: ACYCLOVIR
     Indication: Product used for unknown indication

REACTIONS (5)
  - Mantle cell lymphoma recurrent [Unknown]
  - Disease progression [Unknown]
  - Off label use [Unknown]
  - Optic disc disorder [Unknown]
  - JC virus infection [Unknown]

NARRATIVE: CASE EVENT DATE: 20220117
